FAERS Safety Report 7922117-7 (Version None)
Quarter: 2011Q4

REPORT INFORMATION
  Report Type: 
  Country: None (occurrence: None)
  Receive Date: 20111117
  Receipt Date: 20110413
  Transmission Date: 20120403
  Serious: Yes (Other)
  Sender: FDA-Public Use
  Company Number: US-AMGEN-USASP2011019643

PATIENT
  Age: 50 Year
  Sex: Female

DRUGS (10)
  1. GOLIMUMAB [Concomitant]
  2. ENBREL [Suspect]
     Indication: PSORIATIC ARTHROPATHY
     Dates: end: 20110201
  3. METHOTREXATE [Concomitant]
  4. PAXIL [Concomitant]
  5. SEROQUEL [Concomitant]
  6. SINGULAIR [Concomitant]
  7. FLONASE [Concomitant]
  8. FOLIC ACID [Concomitant]
  9. NAPROXEN (ALEVE) [Concomitant]
  10. ZYRTEC [Concomitant]

REACTIONS (3)
  - HERPES ZOSTER [None]
  - HERPES ZOSTER OPHTHALMIC [None]
  - LYMPHADENITIS [None]
